FAERS Safety Report 7990249-3 (Version None)
Quarter: 2011Q4

REPORT INFORMATION
  Report Type: 
  Country: None (occurrence: None)
  Receive Date: 20111219
  Receipt Date: 20110609
  Transmission Date: 20120403
  Serious: No
  Sender: FDA-Public Use
  Company Number: US-ASTRAZENECA-2011SE35483

PATIENT
  Age: 65 Year
  Sex: Female

DRUGS (4)
  1. LISINOPRIL [Concomitant]
  2. MELOXICOM [Concomitant]
  3. CRESTOR [Suspect]
     Indication: BLOOD CHOLESTEROL INCREASED
     Route: 048
     Dates: start: 20110501, end: 20110608
  4. NEXIUM [Concomitant]

REACTIONS (8)
  - ANXIETY [None]
  - HEADACHE [None]
  - ABDOMINAL DISTENSION [None]
  - NAUSEA [None]
  - ABDOMINAL PAIN UPPER [None]
  - NERVOUSNESS [None]
  - DIZZINESS [None]
  - ABDOMINAL PAIN [None]
